FAERS Safety Report 13856745 (Version 1)
Quarter: 2017Q3

REPORT INFORMATION
  Report Type: Spontaneous
  Country: US (occurrence: US)
  Receive Date: 20170810
  Receipt Date: 20170810
  Transmission Date: 20171127
  Serious: No
  Sender: FDA-Public Use
  Company Number: US-ROCHE-1349840

PATIENT
  Sex: Female

DRUGS (6)
  1. CLARITHROMYCIN. [Concomitant]
     Active Substance: CLARITHROMYCIN
  2. PERFOROMIST [Concomitant]
     Active Substance: FORMOTEROL FUMARATE DIHYDRATE
     Indication: CHRONIC OBSTRUCTIVE PULMONARY DISEASE
     Route: 065
  3. CODEINE [Concomitant]
     Active Substance: CODEINE
  4. TESSALON [Concomitant]
     Active Substance: BENZONATATE
     Indication: COUGH
  5. SYNTHROID [Concomitant]
     Active Substance: LEVOTHYROXINE SODIUM
  6. TAMIFLU [Suspect]
     Active Substance: OSELTAMIVIR PHOSPHATE
     Indication: INFLUENZA
     Route: 065

REACTIONS (7)
  - Heart rate increased [Unknown]
  - Bronchitis [Unknown]
  - Anxiety [Unknown]
  - Sleep disorder [Unknown]
  - Nasopharyngitis [Unknown]
  - Discomfort [Unknown]
  - Influenza [Unknown]
